FAERS Safety Report 12252983 (Version 1)
Quarter: 2016Q2

REPORT INFORMATION
  Report Type: Spontaneous
  Country: US (occurrence: US)
  Receive Date: 20160411
  Receipt Date: 20160411
  Transmission Date: 20160815
  Serious: Yes (Other)
  Sender: FDA-Public Use
  Company Number: US-MDT-ADR-2016-00511

PATIENT
  Age: 52 Year
  Sex: Female

DRUGS (4)
  1. BACLOFEN INTRATHECAL [Suspect]
     Active Substance: BACLOFEN
     Indication: MUSCLE SPASTICITY
     Dosage: 500.1 MCG/DAY
     Route: 037
  2. DILAUDID [Suspect]
     Active Substance: HYDROMORPHONE HYDROCHLORIDE
     Dosage: 7.99 MG/DAY
     Route: 037
  3. OXYCODONE [Suspect]
     Active Substance: OXYCODONE
     Route: 048
  4. BACLOFEN INTRATHECAL [Suspect]
     Active Substance: BACLOFEN
     Indication: MUSCLE SPASTICITY
     Dosage: 399.5 MCG/DAY
     Route: 037

REACTIONS (3)
  - Neoplasm malignant [Unknown]
  - Medical device site warmth [Unknown]
  - Infusion site mass [Unknown]
